FAERS Safety Report 9171238 (Version 1)
Quarter: 2013Q1

REPORT INFORMATION
  Report Type: Spontaneous
  Country: US (occurrence: None)
  Receive Date: 20130318
  Receipt Date: 20130318
  Transmission Date: 20140127
  Serious: No
  Sender: FDA-Public Use
  Company Number: None

PATIENT
  Age: 68 Year
  Sex: Female
  Weight: 76.2 kg

DRUGS (1)
  1. PLAQUENIL [Suspect]
     Indication: SJOGREN^S SYNDROME
     Route: 048
     Dates: start: 20130207, end: 20130224

REACTIONS (4)
  - Urticaria [None]
  - Blood pressure decreased [None]
  - Asthma [None]
  - Drug hypersensitivity [None]
